FAERS Safety Report 4641153-X (Version None)
Quarter: 2005Q2

REPORT INFORMATION
  Report Type: 
  Country: None (occurrence: None)
  Receive Date: 20050421
  Receipt Date: 20050414
  Transmission Date: 20051028
  Serious: Yes (Death, Hospitalization, Other)
  Sender: FDA-Public Use
  Company Number: US-BRISTOL-MYERS SQUIBB COMPANY-12934220

PATIENT
  Age: 68 Year
  Sex: Male
  Weight: 90 kg

DRUGS (4)
  1. CETUXIMAB [Suspect]
     Indication: OESOPHAGEAL CANCER METASTATIC
     Dosage: INITIATED 16-FEB-05 (LD=400MG/M2), TD THIS COURSE=825MG.
     Route: 042
     Dates: start: 20050216, end: 20050216
  2. FENTANYL [Concomitant]
  3. LACTULOSE [Concomitant]
  4. MORPHINE [Concomitant]

REACTIONS (11)
  - ASTHENIA [None]
  - BLOOD ALKALINE PHOSPHATASE INCREASED [None]
  - DEHYDRATION [None]
  - DISEASE PROGRESSION [None]
  - HEPATIC ENCEPHALOPATHY [None]
  - HEPATIC FAILURE [None]
  - HEPATIC FUNCTION ABNORMAL [None]
  - HYPERBILIRUBINAEMIA [None]
  - ORAL INTAKE REDUCED [None]
  - PLATELET COUNT DECREASED [None]
  - URINE OUTPUT DECREASED [None]
